FAERS Safety Report 8605444-X (Version None)
Quarter: 2012Q3

REPORT INFORMATION
  Report Type: 
  Country: None (occurrence: None)
  Receive Date: 20120820
  Receipt Date: 20120814
  Transmission Date: 20120928
  Serious: Yes (Other)
  Sender: FDA-Public Use
  Company Number: US-PFIZER INC-2012198890

PATIENT
  Sex: Male

DRUGS (6)
  1. LYRICA [Suspect]
     Dosage: 50 MG, 3X/DAY
     Route: 048
     Dates: start: 20120801
  2. LYRICA [Suspect]
     Dosage: 75 MG, 4X/DAY
     Route: 048
     Dates: start: 20120713, end: 20120801
  3. LYRICA [Suspect]
     Dosage: 50 MG, 3X/DAY
     Route: 048
     Dates: start: 20120601, end: 20120601
  4. LYRICA [Suspect]
     Dosage: 50 MG, 4X/DAY
     Route: 048
     Dates: start: 20120601, end: 20120701
  5. LYRICA [Suspect]
     Dosage: 75 MG, 3X/DAY
     Route: 048
     Dates: start: 20120701, end: 20120713
  6. LYRICA [Suspect]
     Indication: NECK PAIN
     Dosage: 50 MG, 2X/DAY
     Route: 048
     Dates: start: 20120401, end: 20120601

REACTIONS (2)
  - VISUAL IMPAIRMENT [None]
  - DYSPNOEA [None]
